FAERS Safety Report 11547901 (Version 1)
Quarter: 2015Q3

REPORT INFORMATION
  Report Type: Spontaneous
  Country: US (occurrence: US)
  Receive Date: 20150924
  Receipt Date: 20150924
  Transmission Date: 20151125
  Serious: No
  Sender: FDA-Public Use
  Company Number: US-AMNEAL PHARMACEUTICALS-2015AMN00062

PATIENT
  Age: 47 Year
  Sex: Male
  Weight: 113.38 kg

DRUGS (4)
  1. GABAPENTIN. [Suspect]
     Active Substance: GABAPENTIN
     Indication: ALLERGY TO ARTHROPOD BITE
     Dosage: 1 CAPSULES, 3X/DAY
     Route: 048
     Dates: start: 2013, end: 201503
  2. NUCYNTA [Concomitant]
     Active Substance: TAPENTADOL HYDROCHLORIDE
     Indication: BACK PAIN
     Dosage: 150 MG, 3X/DAY
     Dates: start: 2010
  3. MELOXICAM. [Concomitant]
     Active Substance: MELOXICAM
     Dosage: 7.5 MG, 1X/DAY
  4. CARISOPRODOL. [Concomitant]
     Active Substance: CARISOPRODOL
     Indication: MYALGIA
     Dosage: 350 MG, 3X/DAY
     Dates: start: 2008

REACTIONS (3)
  - Eyelid dermatochalasis [Not Recovered/Not Resolved]
  - Erythema of eyelid [Recovering/Resolving]
  - Peripheral swelling [Recovering/Resolving]

NARRATIVE: CASE EVENT DATE: 201408
